FAERS Safety Report 7357429-1 (Version None)
Quarter: 2011Q1

REPORT INFORMATION
  Report Type: 
  Country: None (occurrence: None)
  Receive Date: 20110314
  Receipt Date: 20110314
  Transmission Date: 20110831
  Serious: Yes (Hospitalization)
  Sender: FDA-Public Use
  Company Number: None

PATIENT
  Sex: Male
  Weight: 14.7 kg

DRUGS (5)
  1. CYTARABINE [Suspect]
     Dosage: 70 MG
  2. VINCRISTINE SULFATE [Suspect]
     Dosage: 1.8 MG
  3. METHOTREXATE [Suspect]
     Dosage: 12 MG
  4. DEXAMETHASONE [Suspect]
     Dosage: 42 MG
  5. PEG-L-ASPARAGINASE (PEGASPARGASE, ONCOSPAR) [Suspect]
     Dosage: 1580 MG

REACTIONS (15)
  - CARDIAC ARREST [None]
  - CATHETER SITE ERYTHEMA [None]
  - BACK PAIN [None]
  - BACTERIAL SEPSIS [None]
  - CONSTIPATION [None]
  - ABDOMINAL DISTENSION [None]
  - CATHETER SITE INFECTION [None]
  - NO THERAPEUTIC RESPONSE [None]
  - CATHETER SITE HAEMATOMA [None]
  - HYPOTENSION [None]
  - ECCHYMOSIS [None]
  - PYREXIA [None]
  - LIVEDO RETICULARIS [None]
  - VOMITING [None]
  - ABDOMINAL PAIN [None]
